FAERS Safety Report 8259303-5 (Version None)
Quarter: 2012Q2

REPORT INFORMATION
  Report Type: 
  Country: None (occurrence: None)
  Receive Date: 20120404
  Receipt Date: 20120308
  Transmission Date: 20120825
  Serious: Yes (Other)
  Sender: FDA-Public Use
  Company Number: US-AMGEN-USASP2012016211

PATIENT
  Age: 41 Year
  Sex: Female

DRUGS (2)
  1. ANAPROX [Concomitant]
     Dosage: UNK
  2. ENBREL [Suspect]
     Indication: PRODUCT USED FOR UNKNOWN INDICATION
     Dosage: UNK

REACTIONS (4)
  - JOINT SWELLING [None]
  - JOINT STIFFNESS [None]
  - PNEUMONIA [None]
  - ANXIETY [None]
